FAERS Safety Report 8960182 (Version 1)
Quarter: 2012Q4

REPORT INFORMATION
  Report Type: 
  Country: US (occurrence: US)
  Receive Date: 20121212
  Receipt Date: 20121212
  Transmission Date: 20130627
  Serious: Yes (Other)
  Sender: FDA-Public Use
  Company Number: US-PFIZER INC-2012269396

PATIENT
  Age: 31 Year
  Sex: Female
  Weight: 79.37 kg

DRUGS (3)
  1. PRISTIQ [Suspect]
     Indication: DEPRESSION
     Dosage: 50 mg, 1x/day
     Dates: start: 2012
  2. LATUDA [Concomitant]
     Dosage: 40 mg, UNK
  3. IBUPROFEN [Concomitant]
     Indication: PAIN
     Dosage: UNK

REACTIONS (5)
  - Mental impairment [Unknown]
  - Dizziness [Unknown]
  - Malaise [Unknown]
  - Disturbance in attention [Unknown]
  - Mental disorder [Unknown]
